FAERS Safety Report 11576085 (Version 3)
Quarter: 2015Q4

REPORT INFORMATION
  Report Type: Spontaneous
  Country: JP (occurrence: JP)
  Receive Date: 20150930
  Receipt Date: 20151105
  Transmission Date: 20160304
  Serious: Yes (Hospitalization)
  Sender: FDA-Public Use
  Company Number: JP-ASTELLAS-2015JP019261

PATIENT

DRUGS (1)
  1. GRACEPTOR [Suspect]
     Active Substance: TACROLIMUS
     Indication: RHEUMATOID ARTHRITIS
     Dosage: UNK UNK, ONCE DAILY IN THE MORNING
     Route: 048

REACTIONS (2)
  - Off label use [Unknown]
  - Hospitalisation [Unknown]
